FAERS Safety Report 4571914-7 (Version None)
Quarter: 2005Q1

REPORT INFORMATION
  Report Type: 
  Country: None (occurrence: None)
  Receive Date: 20050203
  Receipt Date: 20050203
  Transmission Date: 20050727
  Serious: No
  Sender: FDA-Public Use
  Company Number: None

PATIENT
  Sex: Female
  Weight: 97.72 kg

DRUGS (18)
  1. ROCEPHIN [Suspect]
     Indication: ABSCESS LIMB
     Dosage: 26 M Q 24H IV
     Route: 042
     Dates: start: 20050122, end: 20050124
  2. CLEOCIN [Suspect]
     Indication: ABSCESS LIMB
     Dosage: 600MG Q 8H IV
     Route: 042
     Dates: start: 20050122, end: 20050124
  3. SINGULAIR [Concomitant]
  4. NORVASC [Concomitant]
  5. BIOMETA [Concomitant]
  6. ROXICET [Concomitant]
  7. RHINOCORT [Concomitant]
  8. MAXAIR [Concomitant]
  9. ADVAIR DISKUS 100/50 [Concomitant]
  10. ESTRATEST [Concomitant]
  11. MEDROXYPROGESTERONE [Concomitant]
  12. PRANDIS [Concomitant]
  13. AMBIEN [Concomitant]
  14. POTASSIUM CHLORIDE [Concomitant]
  15. PREVACID [Concomitant]
  16. FIORICEF [Concomitant]
  17. PANCREASE [Concomitant]
  18. PREDNISONE [Concomitant]

REACTIONS (1)
  - DIARRHOEA [None]
